FAERS Safety Report 4825115-5 (Version None)
Quarter: 2005Q4

REPORT INFORMATION
  Report Type: 
  Country: None (occurrence: None)
  Receive Date: 20051109
  Receipt Date: 20051109
  Transmission Date: 20060501
  Serious: Yes (Hospitalization)
  Sender: FDA-Public Use
  Company Number: None

PATIENT
  Age: 71 Year
  Sex: Male
  Weight: 73.4827 kg

DRUGS (2)
  1. WARFARIN    5 MG [Suspect]
     Indication: AORTIC VALVE REPLACEMENT
     Dosage: 5 MG  MWFSU    2.5 MG TTHSA   PO
     Route: 048
     Dates: start: 20010901, end: 20051108
  2. WARFARIN    5 MG [Suspect]
     Indication: ATRIAL FIBRILLATION
     Dosage: 5 MG  MWFSU    2.5 MG TTHSA   PO
     Route: 048
     Dates: start: 20010901, end: 20051108

REACTIONS (5)
  - DRUG TOXICITY [None]
  - GASTROINTESTINAL HAEMORRHAGE [None]
  - HAEMATURIA [None]
  - MOUTH HAEMORRHAGE [None]
  - RECTAL HAEMORRHAGE [None]
